FAERS Safety Report 18919936 (Version 1)
Quarter: 2021Q1

REPORT INFORMATION
  Report Type: Spontaneous
  Country: US (occurrence: US)
  Receive Date: 20210222
  Receipt Date: 20210222
  Transmission Date: 20210420
  Serious: Yes (Hospitalization, Other)
  Sender: FDA-Public Use
  Company Number: US-SPECGX-T202100208

PATIENT
  Sex: Female
  Weight: 59 kg

DRUGS (5)
  1. MORPHINE [Concomitant]
     Active Substance: MORPHINE
     Indication: PRODUCT USED FOR UNKNOWN INDICATION
     Dosage: 15 MILLIGRAM, QID
     Route: 065
  2. MORPHINE [Suspect]
     Active Substance: MORPHINE
     Indication: COMPLEX REGIONAL PAIN SYNDROME
     Dosage: 30 MILLIGRAM, TID
     Route: 065
  3. MYRBETRIQ [Concomitant]
     Active Substance: MIRABEGRON
     Indication: URINARY TRACT DISORDER
     Dosage: UN25 MILLIGRAM, QD
     Route: 065
  4. CODEINE AND GUAIFENESIN [Concomitant]
     Active Substance: CODEINE\GUAIFENESIN
     Indication: PRODUCT USED FOR UNKNOWN INDICATION
     Dosage: UNK (100 10/5 SOLUTION, 10 ML, EVERY FOUR HOURS AS NEEDED)
     Route: 048
  5. NEURONTIN [Concomitant]
     Active Substance: GABAPENTIN
     Indication: PRODUCT USED FOR UNKNOWN INDICATION
     Dosage: 1200 MILLIGRAM, TID (300 MG, FOUR TABLETS)
     Route: 065

REACTIONS (8)
  - Spinal compression fracture [Unknown]
  - Hypersensitivity [Unknown]
  - Spinal operation [Unknown]
  - Nerve injury [Unknown]
  - Blood blister [Unknown]
  - Weight bearing difficulty [Unknown]
  - Urticaria [Unknown]
  - Product colour issue [Unknown]
